FAERS Safety Report 17917464 (Version 1)
Quarter: 2020Q2

REPORT INFORMATION
  Report Type: Spontaneous
  Country: US (occurrence: US)
  Receive Date: 20200619
  Receipt Date: 20200619
  Transmission Date: 20200714
  Serious: No
  Sender: FDA-Public Use
  Company Number: US-PHARMING-PHAUS2020000232

PATIENT

DRUGS (1)
  1. RUCONEST [Suspect]
     Active Substance: HUMAN C1-ESTERASE INHIBITOR
     Indication: HEREDITARY ANGIOEDEMA
     Dosage: 4200 IU INTERNATIONAL UNIT(S), EVERY 3 DAYS
     Route: 042
     Dates: start: 20191030

REACTIONS (2)
  - Hereditary angioedema [Recovered/Resolved]
  - Intentional product use issue [Unknown]
